FAERS Safety Report 4833941-1 (Version None)
Quarter: 2005Q4

REPORT INFORMATION
  Report Type: 
  Country: None (occurrence: None)
  Receive Date: 20051118
  Receipt Date: 20051118
  Transmission Date: 20060501
  Serious: Yes (Hospitalization)
  Sender: FDA-Public Use
  Company Number: None

PATIENT
  Sex: Female
  Weight: 58.0604 kg

DRUGS (4)
  1. COMBIVIR [Suspect]
     Indication: PROPHYLAXIS
     Dosage: 1 TABLET PO BID
     Route: 048
     Dates: start: 20050926, end: 20051017
  2. KALETRA [Suspect]
     Indication: PROPHYLAXIS
     Dosage: 3 CAPSULES PO BID
     Route: 048
     Dates: start: 20050927, end: 20051017
  3. LOMOTIL [Concomitant]
  4. TYLENOL [Concomitant]

REACTIONS (18)
  - ABDOMINAL DISTENSION [None]
  - ABDOMINAL PAIN [None]
  - ALANINE AMINOTRANSFERASE INCREASED [None]
  - ASPARTATE AMINOTRANSFERASE INCREASED [None]
  - BILIRUBIN CONJUGATED INCREASED [None]
  - BLOOD ALKALINE PHOSPHATASE INCREASED [None]
  - BLOOD BILIRUBIN ABNORMAL [None]
  - BLOOD BILIRUBIN INCREASED [None]
  - BLOOD LACTATE DEHYDROGENASE INCREASED [None]
  - DIARRHOEA [None]
  - EOSINOPHILIA [None]
  - GALLBLADDER DISORDER [None]
  - INTERNATIONAL NORMALISED RATIO INCREASED [None]
  - NAUSEA [None]
  - PANCREATITIS [None]
  - PROTHROMBIN TIME PROLONGED [None]
  - PYREXIA [None]
  - TRANSAMINASES INCREASED [None]
